FAERS Safety Report 8544229-X (Version None)
Quarter: 2012Q3

REPORT INFORMATION
  Report Type: 
  Country: None (occurrence: None)
  Receive Date: 20120727
  Receipt Date: 20120723
  Transmission Date: 20120928
  Serious: Yes (Other)
  Sender: FDA-Public Use
  Company Number: US-BAYER-2012-073798

PATIENT
  Age: 70 Year
  Sex: Male
  Weight: 88 kg

DRUGS (3)
  1. WELLBUTRIN [Concomitant]
  2. ASPIRIN [Suspect]
     Dosage: UNK
     Route: 048
     Dates: start: 20120712, end: 20120712
  3. FLOMAX [Concomitant]

REACTIONS (1)
  - TRANSIENT ISCHAEMIC ATTACK [None]
